FAERS Safety Report 14893323 (Version 1)
Quarter: 2018Q2

REPORT INFORMATION
  Report Type: Spontaneous
  Country: US (occurrence: US)
  Receive Date: 20180514
  Receipt Date: 20180514
  Transmission Date: 20180711
  Serious: Yes (Hospitalization)
  Sender: FDA-Public Use
  Company Number: US-VALIDUS PHARMACEUTICALS LLC-US-2018VAL000758

PATIENT
  Age: 50 Year
  Sex: Male

DRUGS (8)
  1. CYTOXAN [Suspect]
     Active Substance: CYCLOPHOSPHAMIDE
     Indication: THYMOMA MALIGNANT
     Dosage: UNK
     Route: 065
     Dates: start: 1980, end: 1982
  2. TETRACYCLINE HYDROCHLORIDE. [Suspect]
     Active Substance: TETRACYCLINE HYDROCHLORIDE
     Indication: CAMPYLOBACTER INFECTION
     Dosage: UNK
     Route: 048
  3. ERYTHROMYCIN. [Suspect]
     Active Substance: ERYTHROMYCIN
     Indication: CAMPYLOBACTER INFECTION
     Dosage: 500 MG, QID
     Route: 048
  4. AMPICILLIN [Suspect]
     Active Substance: AMPICILLIN
     Indication: CAMPYLOBACTER INFECTION
     Dosage: UNK
     Route: 042
  5. GENTAMICIN. [Suspect]
     Active Substance: GENTAMICIN
     Indication: CAMPYLOBACTER INFECTION
     Dosage: UNK
     Route: 042
  6. CEFOTAXIME SODIUM [Suspect]
     Active Substance: CEFOTAXIME SODIUM
     Indication: CAMPYLOBACTER INFECTION
     Dosage: UNK
     Route: 042
  7. CISPLATIN. [Suspect]
     Active Substance: CISPLATIN
     Indication: THYMOMA MALIGNANT
     Dosage: UNK
     Route: 065
     Dates: start: 1980, end: 1982
  8. PREDNISONE. [Suspect]
     Active Substance: PREDNISONE
     Indication: APLASIA PURE RED CELL
     Dosage: UNK
     Route: 065

REACTIONS (17)
  - Drug resistance [Unknown]
  - Campylobacter infection [Recovered/Resolved]
  - Oedema peripheral [Unknown]
  - Breath sounds abnormal [Unknown]
  - Neutrophil count increased [Recovered/Resolved]
  - Cellulitis [Unknown]
  - Tenderness [Unknown]
  - Homans^ sign positive [Unknown]
  - Lymphocyte count decreased [Recovered/Resolved]
  - Thrombophlebitis [Unknown]
  - Campylobacter test positive [Recovered/Resolved]
  - Monocyte count decreased [Recovered/Resolved]
  - Seizure [Recovered/Resolved]
  - Arthralgia [Unknown]
  - Erythema [Unknown]
  - Pleural effusion [Unknown]
  - Pyrexia [Recovered/Resolved]
